FAERS Safety Report 7305931-0 (Version None)
Quarter: 2011Q1

REPORT INFORMATION
  Report Type: 
  Country: None (occurrence: None)
  Receive Date: 20110209
  Receipt Date: 20110201
  Transmission Date: 20110831
  Serious: Yes (Death)
  Sender: FDA-Public Use
  Company Number: 2011SP005332

PATIENT
  Sex: Male

DRUGS (14)
  1. TEMODAR [Suspect]
     Indication: MALIGNANT GLIOMA
     Dosage: SEE IMAGE
     Dates: start: 20081022, end: 20081026
  2. TEMODAR [Suspect]
     Indication: MALIGNANT GLIOMA
     Dosage: SEE IMAGE
     Dates: start: 20090303, end: 20090317
  3. TEMODAR [Suspect]
     Indication: MALIGNANT GLIOMA
     Dosage: SEE IMAGE
     Dates: start: 20090618, end: 20090622
  4. TEMODAR [Suspect]
     Indication: MALIGNANT GLIOMA
     Dosage: SEE IMAGE
     Dates: start: 20100601
  5. TEMODAR [Suspect]
     Indication: MALIGNANT GLIOMA
     Dosage: SEE IMAGE
     Dates: start: 20081109, end: 20081123
  6. TEMODAR [Suspect]
     Indication: MALIGNANT GLIOMA
     Dosage: SEE IMAGE
     Dates: start: 20100701
  7. TEMODAR [Suspect]
     Indication: MALIGNANT GLIOMA
     Dosage: SEE IMAGE
     Dates: start: 20090213, end: 20090217
  8. TEMODAR [Suspect]
     Indication: MALIGNANT GLIOMA
     Dosage: SEE IMAGE
     Dates: start: 20090521, end: 20090525
  9. TEMODAR [Suspect]
     Indication: MALIGNANT GLIOMA
     Dosage: SEE IMAGE
     Dates: start: 20090410, end: 20090414
  10. TEMODAR [Suspect]
     Indication: MALIGNANT GLIOMA
     Dosage: SEE IMAGE
     Dates: start: 20090910, end: 20090914
  11. TEMODAR [Suspect]
     Indication: MALIGNANT GLIOMA
     Dosage: SEE IMAGE
     Dates: start: 20090116, end: 20090120
  12. TEMODAR [Suspect]
     Indication: MALIGNANT GLIOMA
     Dosage: SEE IMAGE
     Dates: start: 20081217, end: 20081221
  13. TEMODAR [Suspect]
     Indication: MALIGNANT GLIOMA
     Dosage: SEE IMAGE
     Dates: start: 20090814, end: 20090818
  14. TEMODAR [Suspect]
     Indication: MALIGNANT GLIOMA
     Dosage: SEE IMAGE
     Dates: start: 20090717, end: 20090724

REACTIONS (1)
  - DEATH [None]
